FAERS Safety Report 17356471 (Version 2)
Quarter: 2020Q1

REPORT INFORMATION
  Report Type: Spontaneous
  Country: CZ (occurrence: CZ)
  Receive Date: 20200131
  Receipt Date: 20200207
  Transmission Date: 20200409
  Serious: Yes (Hospitalization, Other)
  Sender: FDA-Public Use
  Company Number: CZ-MYLANLABS-2020M1010871

PATIENT
  Age: 72 Year

DRUGS (1)
  1. METFORMIN [Suspect]
     Active Substance: METFORMIN HYDROCHLORIDE
     Dosage: DOSE-1700
     Route: 048

REACTIONS (18)
  - Blood sodium decreased [Unknown]
  - Base excess decreased [Unknown]
  - PO2 increased [Unknown]
  - Blood pH decreased [Unknown]
  - Anion gap increased [Unknown]
  - Gastrointestinal disorder [Unknown]
  - Lactic acidosis [Unknown]
  - Acute kidney injury [Unknown]
  - Blood magnesium increased [Unknown]
  - Hypovolaemia [Unknown]
  - Creatinine renal clearance decreased [Unknown]
  - PCO2 decreased [Unknown]
  - Hypocapnia [Unknown]
  - Blood bicarbonate decreased [Unknown]
  - Blood phosphorus decreased [Unknown]
  - Blood chloride decreased [Unknown]
  - Toxicity to various agents [Unknown]
  - Blood creatinine increased [Unknown]

NARRATIVE: CASE EVENT DATE: 1999
